FAERS Safety Report 6805560-9 (Version None)
Quarter: 2010Q2

REPORT INFORMATION
  Report Type: 
  Country: None (occurrence: None)
  Receive Date: 20100628
  Receipt Date: 20080304
  Transmission Date: 20101027
  Serious: Yes (Hospitalization, Other)
  Sender: FDA-Public Use
  Company Number: US-PFIZER INC-2008001407

PATIENT
  Sex: Male
  Weight: 68 kg

DRUGS (4)
  1. GEODON [Suspect]
     Indication: BIPOLAR I DISORDER
     Dates: start: 20070301
  2. GEODON [Suspect]
  3. ALL OTHER THERAPEUTIC PRODUCTS [Suspect]
     Dates: start: 20071201
  4. LEXAPRO [Concomitant]

REACTIONS (2)
  - DEPRESSION [None]
  - MALAISE [None]
